FAERS Safety Report 7991630-9 (Version None)
Quarter: 2011Q4

REPORT INFORMATION
  Report Type: 
  Country: None (occurrence: None)
  Receive Date: 20111219
  Receipt Date: 20111207
  Transmission Date: 20120403
  Serious: Yes (Hospitalization)
  Sender: FDA-Public Use
  Company Number: PHHO2011US14378

PATIENT
  Sex: Male
  Weight: 81.5 kg

DRUGS (10)
  1. FANAPT [Suspect]
     Dosage: 6 MG, BID
     Dates: start: 20110822, end: 20110831
  2. FANAPT [Suspect]
     Dosage: 2 MG, BID
     Dates: start: 20110820, end: 20110820
  3. ABILIFY [Concomitant]
     Dosage: 15 MG, QD
     Route: 048
     Dates: start: 20110615, end: 20110818
  4. FANAPT [Suspect]
     Indication: SCHIZOPHRENIA
     Dosage: 1 MG, BID
     Dates: start: 20110819, end: 20110819
  5. HYDROCHLOROTHIAZIDE [Suspect]
     Dosage: 10 MG, UNK
     Route: 048
     Dates: start: 20070901
  6. DIOVAN [Suspect]
     Dosage: 320 MG, UNK
     Route: 048
     Dates: start: 20070901
  7. FANAPT [Suspect]
     Dosage: 4 MG, BID
     Dates: start: 20110821, end: 20110821
  8. ABILIFY [Concomitant]
     Indication: SCHIZOPHRENIA
     Dosage: 10 MG, QD
     Route: 048
     Dates: start: 20110819, end: 20110830
  9. HUMULIN R [Suspect]
     Indication: TYPE 1 DIABETES MELLITUS
     Dosage: 70/30
     Route: 030
     Dates: start: 19610101
  10. ABILIFY [Concomitant]
     Dosage: 15 MG, QD
     Route: 048
     Dates: start: 20110901

REACTIONS (4)
  - DIABETES MELLITUS [None]
  - ARTHRALGIA [None]
  - CONCOMITANT DISEASE PROGRESSION [None]
  - SYNCOPE [None]
